FAERS Safety Report 10008775 (Version 2)
Quarter: 2014Q1

REPORT INFORMATION
  Report Type: Spontaneous
  Country: US (occurrence: US)
  Receive Date: 20140312
  Receipt Date: 20140312
  Transmission Date: 20141002
  Serious: No
  Sender: FDA-Public Use
  Company Number: US-INCYTE CORPORATION-2012IN000296

PATIENT
  Age: 74 Year
  Sex: Male
  Weight: 75.74 kg

DRUGS (9)
  1. JAKAFI [Suspect]
     Indication: MYELOFIBROSIS
     Dosage: 5 MG, BID
     Route: 048
     Dates: start: 20120126
  2. PREDNISONE [Concomitant]
     Dosage: 5 MG, QD
     Dates: start: 2012, end: 2012
  3. PREDNISONE [Concomitant]
     Dosage: 2.5 MG, QOD
     Dates: start: 2012, end: 20120320
  4. PRILOSEC [Concomitant]
  5. SIMVASTATIN [Concomitant]
  6. MULTIVITAMINS [Concomitant]
  7. GLUCOSAMINE [Concomitant]
  8. FLOMAX [Concomitant]
  9. BYSTOLIC [Concomitant]

REACTIONS (7)
  - Dyspnoea exertional [Not Recovered/Not Resolved]
  - Bloody discharge [Not Recovered/Not Resolved]
  - Anaemia [Not Recovered/Not Resolved]
  - Abdominal pain [Recovered/Resolved]
  - Somnolence [Not Recovered/Not Resolved]
  - Pyrexia [Unknown]
  - Fatigue [Not Recovered/Not Resolved]
